FAERS Safety Report 6201057-8 (Version None)
Quarter: 2009Q2

REPORT INFORMATION
  Report Type: 
  Country: None (occurrence: None)
  Receive Date: 20090526
  Receipt Date: 20090422
  Transmission Date: 20091009
  Serious: No
  Sender: FDA-Public Use
  Company Number: US-BAYER-200918878NA

PATIENT
  Age: 73 Year
  Sex: Female

DRUGS (3)
  1. CIPRO [Suspect]
     Indication: CYSTITIS
  2. LOPRESSOR [Concomitant]
  3. MONOPRIL [Concomitant]

REACTIONS (1)
  - MUSCLE TWITCHING [None]
